FAERS Safety Report 9134886 (Version 1)
Quarter: 2013Q1

REPORT INFORMATION
  Report Type: Spontaneous
  Country: US (occurrence: US)
  Receive Date: 20130304
  Receipt Date: 20130304
  Transmission Date: 20140127
  Serious: Yes (Other)
  Sender: FDA-Public Use
  Company Number: US-BAYER-2013-025116

PATIENT
  Sex: Female

DRUGS (1)
  1. ALEVE CAPLET/TABLET,MIDOL EXTENDED RELIEF CAPLET [Suspect]
     Indication: DYSMENORRHOEA
     Dosage: UNK

REACTIONS (8)
  - Vaginal haemorrhage [None]
  - Incorrect dose administered [None]
  - Drug ineffective [None]
  - Body temperature increased [None]
  - Exposure during pregnancy [None]
  - Frustration [None]
  - Depressed mood [None]
  - Nausea [None]
